FAERS Safety Report 5211860-9 (Version None)
Quarter: 2007Q1

REPORT INFORMATION
  Report Type: 
  Country: None (occurrence: None)
  Receive Date: 20070116
  Receipt Date: 20070116
  Transmission Date: 20070707
  Serious: Yes (Other)
  Sender: FDA-Public Use
  Company Number: None

PATIENT
  Sex: Female
  Weight: 60.3284 kg

DRUGS (3)
  1. LISINOPRIL [Suspect]
     Indication: NAUSEA
     Dosage: 20 MG ONE DAILY PO
     Route: 048
  2. LISINOPRIL [Suspect]
     Indication: VOMITING
     Dosage: 20 MG ONE DAILY PO
     Route: 048
  3. ALTACE [Suspect]
     Indication: CONSTIPATION
     Dosage: ONE DAILY PO
     Route: 048

REACTIONS (3)
  - CONSTIPATION [None]
  - NAUSEA [None]
  - VOMITING [None]
